FAERS Safety Report 6401731-4 (Version None)
Quarter: 2009Q4

REPORT INFORMATION
  Report Type: 
  Country: None (occurrence: None)
  Receive Date: 20091009
  Receipt Date: 20091009
  Transmission Date: 20100525
  Serious: Yes (Hospitalization)
  Sender: FDA-Public Use
  Company Number: None

PATIENT
  Sex: Male
  Weight: 70 kg

DRUGS (5)
  1. VINCRISTINE SULFATE [Suspect]
     Dosage: 2 MG
  2. CYCLOPHOSPHAMIDE [Suspect]
     Dosage: 1400 MG
  3. DOXORUBICIN HCL [Suspect]
     Dosage: 76 MG
  4. PREDNISONE [Suspect]
     Dosage: 500 MG
  5. RITUXIMAB (MOAB C2B8 ANTI CD20, CHIMERIC) [Suspect]
     Dosage: 710 MG

REACTIONS (2)
  - FREQUENT BOWEL MOVEMENTS [None]
  - SMALL INTESTINAL OBSTRUCTION [None]
